FAERS Safety Report 10395361 (Version 1)
Quarter: 2014Q3

REPORT INFORMATION
  Report Type: Spontaneous
  Country: US (occurrence: None)
  Receive Date: 20140815
  Receipt Date: 20140815
  Transmission Date: 20150326
  Serious: No
  Sender: FDA-Public Use
  Company Number: None

PATIENT
  Age: 65 Year
  Sex: Male
  Weight: 127.46 kg

DRUGS (2)
  1. BENDAMUSTINE HYDROCHLORIDE [Suspect]
     Active Substance: BENDAMUSTINE HYDROCHLORIDE
     Dates: end: 20140731
  2. RITUXIMAB(MOAB C2B8 ANTI CD20, CHIMERIC) [Suspect]
     Active Substance: RITUXIMAB
     Dates: end: 20140729

REACTIONS (2)
  - Pyrexia [None]
  - Chills [None]

NARRATIVE: CASE EVENT DATE: 20140811
